FAERS Safety Report 20689035 (Version 1)
Quarter: 2022Q2

REPORT INFORMATION
  Report Type: Report from Study
  Country: US (occurrence: US)
  Receive Date: 20220408
  Receipt Date: 20220408
  Transmission Date: 20220721
  Serious: Yes (Hospitalization)
  Sender: FDA-Public Use
  Company Number: US-CELGENE-USA-20211206667

PATIENT
  Age: 91 Year
  Sex: Female
  Weight: 65.32 kg

DRUGS (1)
  1. AZACITIDINE [Suspect]
     Active Substance: AZACITIDINE
     Indication: Myelodysplastic syndrome
     Dosage: FOR 7 DAYS WITHIN THE FIRST 9 CALENDAR DAYS OF EACH 28 DAY CYCLE
     Route: 058
     Dates: start: 20211122

REACTIONS (1)
  - Vertigo [Recovered/Resolved]

NARRATIVE: CASE EVENT DATE: 20211210
